FAERS Safety Report 5192440-0 (Version None)
Quarter: 2006Q4

REPORT INFORMATION
  Report Type: 
  Country: None (occurrence: None)
  Receive Date: 20061220
  Receipt Date: 20061208
  Transmission Date: 20070319
  Serious: Yes (Other)
  Sender: FDA-Public Use
  Company Number: 2006152377

PATIENT
  Age: 64 Year
  Sex: Male
  Weight: 89.8122 kg

DRUGS (5)
  1. NEURONTIN [Suspect]
     Indication: NERVE INJURY
     Dosage: 1800 MG (600 MG, 3 IN 1 D)
     Dates: start: 20050101
  2. LYRICA [Suspect]
     Indication: NERVE INJURY
     Dosage: 225 MG (75 MG, 3 IN 1D)
     Dates: start: 20051001
  3. ALL OTHER THERAPEUTIC PRODUCTS [Concomitant]
  4. MIRAPEX [Concomitant]
  5. FLEXERIL [Concomitant]

REACTIONS (3)
  - HAEMORRHAGE [None]
  - RASH PRURITIC [None]
  - RECURRENT CANCER [None]
